FAERS Safety Report 8018314-5 (Version None)
Quarter: 2012Q1

REPORT INFORMATION
  Report Type: 
  Country: None (occurrence: None)
  Receive Date: 20120103
  Receipt Date: 20111223
  Transmission Date: 20120608
  Serious: Yes (Hospitalization)
  Sender: FDA-Public Use
  Company Number: GB-TEVA-313057ISR

PATIENT
  Sex: Male

DRUGS (2)
  1. PREDNISOLONE [Suspect]
     Indication: RHEUMATOID ARTHRITIS
  2. HUMIRA [Suspect]
     Indication: RHEUMATOID ARTHRITIS

REACTIONS (3)
  - SQUAMOUS CELL CARCINOMA [None]
  - LUNG INFECTION [None]
  - PULMONARY HAEMORRHAGE [None]
